FAERS Safety Report 5249856-3 (Version None)
Quarter: 2007Q1

REPORT INFORMATION
  Report Type: 
  Country: None (occurrence: None)
  Receive Date: 20070228
  Receipt Date: 20070219
  Transmission Date: 20070707
  Serious: Yes (Hospitalization)
  Sender: FDA-Public Use
  Company Number: FR-GLAXOSMITHKLINE-B0459182A

PATIENT
  Age: 56 Year
  Sex: Male
  Weight: 58 kg

DRUGS (6)
  1. CLAVENTIN [Suspect]
     Indication: LUNG INFECTION
     Dosage: 5G THREE TIMES PER DAY
     Route: 042
     Dates: start: 20070115, end: 20070120
  2. BACTRIM [Suspect]
     Indication: LUNG INFECTION
     Dosage: 2AMP TWICE PER DAY
     Route: 042
     Dates: start: 20070115, end: 20070120
  3. TRIATEC [Suspect]
     Indication: ESSENTIAL HYPERTENSION
     Dosage: 2.5MG PER DAY
     Route: 048
     Dates: start: 20070116, end: 20070120
  4. LASIX [Concomitant]
     Dosage: 20MG THREE TIMES PER DAY
     Route: 042
     Dates: start: 20070109
  5. OMEPRAZOLE [Concomitant]
     Dosage: 40MG PER DAY
     Route: 042
     Dates: start: 20070102
  6. LOVENOX [Concomitant]
     Dosage: 40MG PER DAY
     Route: 058
     Dates: start: 20070102

REACTIONS (6)
  - ALANINE AMINOTRANSFERASE INCREASED [None]
  - ASPARTATE AMINOTRANSFERASE INCREASED [None]
  - BLOOD ALKALINE PHOSPHATASE INCREASED [None]
  - BLOOD BILIRUBIN INCREASED [None]
  - CHOLESTASIS [None]
  - GAMMA-GLUTAMYLTRANSFERASE INCREASED [None]
